FAERS Safety Report 10072411 (Version 2)
Quarter: 2014Q2

REPORT INFORMATION
  Report Type: Spontaneous
  Country: US (occurrence: US)
  Receive Date: 20140411
  Receipt Date: 20140411
  Transmission Date: 20141212
  Serious: Yes (Death, Hospitalization)
  Sender: FDA-Public Use
  Company Number: US-CELGENEUS-163-21880-14013895

PATIENT
  Age: 70 Year
  Sex: Female

DRUGS (2)
  1. REVLIMID [Suspect]
     Indication: LYMPHOMA
     Dosage: 10 MILLIGRAM
     Route: 048
     Dates: start: 201401
  2. REVLIMID [Suspect]
     Indication: GASTROINTESTINAL HAEMORRHAGE

REACTIONS (3)
  - Death [Fatal]
  - Gastrointestinal haemorrhage [Recovered/Resolved]
  - Lymphoma [Unknown]
